FAERS Safety Report 9540294 (Version 1)
Quarter: 2013Q3

REPORT INFORMATION
  Report Type: Spontaneous
  Country: GR (occurrence: GR)
  Receive Date: 20130920
  Receipt Date: 20130920
  Transmission Date: 20140515
  Serious: Yes (Hospitalization)
  Sender: FDA-Public Use
  Company Number: PHHY2013GR103192

PATIENT
  Age: 74 Year
  Sex: Female

DRUGS (8)
  1. GLIVEC [Suspect]
     Indication: CHRONIC MYELOID LEUKAEMIA
     Dosage: 1 DF ONCE DAILY
     Route: 048
     Dates: start: 200901
  2. PROLIA [Suspect]
     Indication: OSTEOPOROSIS
     Dosage: 60 MG, UNK
     Route: 058
     Dates: start: 20130715, end: 20130715
  3. BISPHOSPHONATES [Concomitant]
     Dosage: UNK UKN, UNK
  4. DILATREND [Concomitant]
     Dosage: UNK UKN, UNK
  5. ONE-ALPHA [Concomitant]
     Dosage: UNK UKN, UNK
  6. PROTHURIL [Concomitant]
     Dosage: UNK UKN, UNK
  7. TRIATEC PLUS [Concomitant]
     Dosage: UNK UKN, UNK
  8. CALCIORAL D3 [Concomitant]
     Dosage: UNK UKN, UNK

REACTIONS (1)
  - Osteonecrosis of jaw [Unknown]
